FAERS Safety Report 5733899-7 (Version None)
Quarter: 2008Q2

REPORT INFORMATION
  Report Type: 
  Country: None (occurrence: None)
  Receive Date: 20080509
  Receipt Date: 20080428
  Transmission Date: 20081010
  Serious: Yes (Disabling, Other)
  Sender: FDA-Public Use
  Company Number: US-PFIZER INC-2008037351

PATIENT
  Sex: Male
  Weight: 81.6 kg

DRUGS (7)
  1. VIAGRA [Suspect]
     Indication: ERECTILE DYSFUNCTION
  2. ISONIAZID [Suspect]
     Indication: TUBERCULOSIS
  3. CIALIS [Suspect]
     Indication: ERECTILE DYSFUNCTION
  4. CAPTOPRIL [Concomitant]
  5. ZESTRIL [Concomitant]
  6. RANITIDINE [Concomitant]
  7. ALBUTEROL [Concomitant]
     Route: 055

REACTIONS (2)
  - BLINDNESS [None]
  - MULTIPLE SCLEROSIS [None]
